FAERS Safety Report 9408652 (Version 2)
Quarter: 2013Q3

REPORT INFORMATION
  Report Type: Spontaneous
  Country: JP (occurrence: JP)
  Receive Date: 20130718
  Receipt Date: 20130729
  Transmission Date: 20140515
  Serious: Yes (Hospitalization)
  Sender: FDA-Public Use
  Company Number: JP-009507513-1307JPN006533

PATIENT
  Sex: Female

DRUGS (7)
  1. EMEND [Suspect]
     Indication: PROPHYLAXIS OF NAUSEA AND VOMITING
     Route: 048
  2. EMEND [Suspect]
     Indication: PROPHYLAXIS OF NAUSEA AND VOMITING
     Route: 048
  3. SULFAMETHOXAZOLE (+) TRIMETHOPRIM [Suspect]
     Route: 048
  4. DEXAMETHASONE SODIUM PHOSPHATE [Concomitant]
  5. DEXAMETHASONE [Concomitant]
  6. LEVOFLOXACIN [Concomitant]
     Dosage: 500 MG, QD
  7. CEFEPIME HYDROCHLORIDE [Concomitant]
     Dosage: 1 G, QD

REACTIONS (2)
  - Pneumocystis jirovecii pneumonia [Recovered/Resolved]
  - Generalised erythema [Recovered/Resolved]
